FAERS Safety Report 6013763-9 (Version None)
Quarter: 2008Q4

REPORT INFORMATION
  Report Type: 
  Country: None (occurrence: None)
  Receive Date: 20081219
  Receipt Date: 20081216
  Transmission Date: 20090506
  Serious: Yes (Other)
  Sender: FDA-Public Use
  Company Number: B0550715A

PATIENT
  Sex: Female

DRUGS (3)
  1. ZYBAN [Suspect]
     Indication: SMOKING CESSATION THERAPY
     Route: 048
     Dates: start: 20081110, end: 20081125
  2. REDUCTIL [Concomitant]
     Indication: WEIGHT CONTROL
  3. THYROXINE TABLETS [Concomitant]

REACTIONS (3)
  - ANXIETY [None]
  - STRESS [None]
  - TREMOR [None]
